FAERS Safety Report 21130872 (Version 1)
Quarter: 2022Q3

REPORT INFORMATION
  Report Type: Spontaneous
  Country: FR (occurrence: FR)
  Receive Date: 20220726
  Receipt Date: 20220726
  Transmission Date: 20221026
  Serious: Yes (Other)
  Sender: FDA-Public Use
  Company Number: FR-SUN PHARMACEUTICAL INDUSTRIES LTD-2022RR-346074

PATIENT
  Age: 40 Year
  Sex: Female

DRUGS (1)
  1. ATENOLOL [Suspect]
     Active Substance: ATENOLOL
     Indication: Stress management
     Dosage: 100 MILLIGRAM, 1 TAB 50 MG AT 15H AND ANOTHER 1 TAB AT 17H
     Route: 048
     Dates: start: 20220531

REACTIONS (2)
  - Bradycardia [Recovered/Resolved]
  - Hypotension [Recovered/Resolved]

NARRATIVE: CASE EVENT DATE: 20220531
